FAERS Safety Report 11767813 (Version 1)
Quarter: 2015Q4

REPORT INFORMATION
  Report Type: Spontaneous
  Country: US (occurrence: None)
  Receive Date: 20151120
  Receipt Date: 20151120
  Transmission Date: 20160304
  Serious: No
  Sender: FDA-Public Use
  Company Number: None

PATIENT
  Age: 69 Year
  Sex: Female
  Weight: 72.58 kg

DRUGS (4)
  1. ASPIRIN. [Suspect]
     Active Substance: ASPIRIN
     Indication: MYOCARDIAL INFARCTION
     Dosage: 1 PILL
     Dates: start: 20151014, end: 20151104
  2. ASPIRIN. [Suspect]
     Active Substance: ASPIRIN
     Indication: PROPHYLAXIS
     Dosage: 1 PILL
     Dates: start: 20151014, end: 20151104
  3. ONE DAY VITAMIN [Concomitant]
  4. ASPIRIN. [Suspect]
     Active Substance: ASPIRIN
     Indication: BLOOD CHOLESTEROL INCREASED
     Dosage: 1 PILL
     Dates: start: 20151014, end: 20151104

REACTIONS (2)
  - Tinnitus [None]
  - Cerebrovascular accident [None]

NARRATIVE: CASE EVENT DATE: 20151104
